FAERS Safety Report 5929253-5 (Version None)
Quarter: 2008Q4

REPORT INFORMATION
  Report Type: 
  Country: None (occurrence: None)
  Receive Date: 20081020
  Receipt Date: 20081015
  Transmission Date: 20090506
  Serious: Yes (Death)
  Sender: FDA-Public Use
  Company Number: 2008SP020412

PATIENT
  Age: 65 Year

DRUGS (3)
  1. TEMODAL [Suspect]
     Indication: MALIGNANT GLIOMA
     Dosage: ; PO
     Route: 048
  2. INTERFERON BETA [Concomitant]
  3. INTERFERON BETA [Concomitant]

REACTIONS (2)
  - OPPORTUNISTIC INFECTION [None]
  - PNEUMONIA [None]
